FAERS Safety Report 5317135-1 (Version None)
Quarter: 2007Q2

REPORT INFORMATION
  Report Type: 
  Country: None (occurrence: None)
  Receive Date: 20070504
  Receipt Date: 20070423
  Transmission Date: 20071010
  Serious: Yes (Hospitalization, Disabling)
  Sender: FDA-Public Use
  Company Number: GB-AMGEN-US221012

PATIENT
  Sex: Female

DRUGS (8)
  1. ENBREL [Suspect]
     Indication: RHEUMATOID ARTHRITIS
     Route: 058
     Dates: start: 20070101, end: 20070405
  2. ATENOLOL [Concomitant]
     Indication: HYPERTENSION
     Route: 048
  3. ADCAL D3 [Concomitant]
     Indication: OSTEOPOROSIS
     Route: 048
  4. FELODIPINE [Concomitant]
     Indication: HYPERTENSION
     Route: 048
  5. CELEBREX [Concomitant]
     Indication: PAIN
     Route: 048
  6. ALENDRONIC ACID [Concomitant]
     Indication: RHEUMATOID ARTHRITIS
     Route: 048
  7. FESOFOR [Concomitant]
     Route: 048
  8. PARACETAMOL [Concomitant]
     Indication: PAIN
     Route: 048

REACTIONS (6)
  - CONCOMITANT DISEASE AGGRAVATED [None]
  - HEADACHE [None]
  - HYPERTENSION [None]
  - MALAISE [None]
  - RASH [None]
  - VISION BLURRED [None]
